FAERS Safety Report 10599182 (Version 2)
Quarter: 2014Q4

REPORT INFORMATION
  Report Type: Report from Study
  Country: BR (occurrence: BR)
  Receive Date: 20141121
  Receipt Date: 20141204
  Transmission Date: 20150529
  Serious: Yes (Life-Threatening)
  Sender: FDA-Public Use
  Company Number: PHHY2014BR152913

PATIENT
  Sex: Female
  Weight: 78 kg

DRUGS (5)
  1. DIOVAN [Suspect]
     Active Substance: VALSARTAN
     Indication: HYPERTENSION
     Dosage: 1 DF (80 MG), QD
     Route: 065
  2. PREDNISONE. [Suspect]
     Active Substance: PREDNISONE
     Indication: PLATELET DISORDER
     Dosage: 60 MG, QD
     Route: 065
  3. DIOVAN [Suspect]
     Active Substance: VALSARTAN
     Dosage: 1 DF (320 MG), QD (IN THE MORNING)
     Route: 065
  4. DIOVAN [Suspect]
     Active Substance: VALSARTAN
     Dosage: 1 DF (160 MG), QD
     Route: 065
  5. PREDNISONE. [Suspect]
     Active Substance: PREDNISONE
     Dosage: 5 MG, UNK
     Route: 065

REACTIONS (3)
  - Platelet count decreased [Recovering/Resolving]
  - Heart rate increased [Recovering/Resolving]
  - Hypertension [Recovering/Resolving]
